FAERS Safety Report 5129791-1 (Version None)
Quarter: 2006Q4

REPORT INFORMATION
  Report Type: 
  Country: None (occurrence: None)
  Receive Date: 20061018
  Receipt Date: 20060504
  Transmission Date: 20070319
  Serious: Yes (Death)
  Sender: FDA-Public Use
  Company Number: US-SANOFI-SYNTHELABO-A03200602836

PATIENT
  Sex: Female
  Weight: 113.38 kg

DRUGS (9)
  1. LASIX [Concomitant]
     Dosage: UNK
     Route: 065
  2. HUMULIN 70/30 [Concomitant]
     Dosage: UNK
     Route: 058
  3. COREG [Concomitant]
     Dosage: UNK
     Route: 048
  4. VYTORIN [Concomitant]
     Dosage: UNK
     Route: 048
  5. LANOXIN [Concomitant]
     Dosage: UNK
     Route: 048
  6. IMDUR [Concomitant]
     Dosage: UNK
     Route: 048
  7. ALLOPURINOL [Concomitant]
     Dosage: UNK
     Route: 048
  8. COUMADIN [Concomitant]
     Dosage: UNK
     Route: 048
  9. PLAVIX [Suspect]
     Indication: DRUG USE FOR UNKNOWN INDICATION
     Dosage: UNK
     Route: 048

REACTIONS (2)
  - DRUG INEFFECTIVE [None]
  - MYOCARDIAL INFARCTION [None]
